FAERS Safety Report 4357657-3 (Version None)
Quarter: 2004Q2

REPORT INFORMATION
  Report Type: 
  Country: None (occurrence: None)
  Receive Date: 20040511
  Receipt Date: 20040429
  Transmission Date: 20050107
  Serious: Yes (Death, Hospitalization, Other)
  Sender: FDA-Public Use
  Company Number: 2004-SW-00017SW

PATIENT
  Age: 76 Year
  Sex: Male

DRUGS (2)
  1. SIFROL  (PRAMIPEXOLE DIHYDROCHLORIDE) [Suspect]
     Indication: PARKINSONISM
     Dosage: 0.72 MG (0.18 MG,)
     Route: 048
     Dates: start: 19980101
  2. MADOPARK (MADOPAR) (TA) [Suspect]
     Indication: PARKINSONISM
     Dosage: 400 MG (100 MG, 1 IN 6 HR)
     Route: 048
     Dates: start: 19960101

REACTIONS (8)
  - GENERAL PHYSICAL HEALTH DETERIORATION [None]
  - INFLAMMATION [None]
  - INTERSTITIAL LUNG DISEASE [None]
  - IRON DEFICIENCY ANAEMIA [None]
  - PNEUMONIA [None]
  - PULMONARY FIBROSIS [None]
  - PULMONARY OEDEMA [None]
  - PYREXIA [None]
